FAERS Safety Report 6900981-8 (Version None)
Quarter: 2010Q3

REPORT INFORMATION
  Report Type: 
  Country: None (occurrence: None)
  Receive Date: 20100803
  Receipt Date: 20100727
  Transmission Date: 20110219
  Serious: Yes (Hospitalization)
  Sender: FDA-Public Use
  Company Number: B0665501A

PATIENT
  Sex: Female

DRUGS (4)
  1. ROPINIROLE HYDROCHLORIDE [Suspect]
     Indication: RESTLESS LEGS SYNDROME
     Dosage: .25MG TWICE PER DAY
     Route: 048
     Dates: start: 20100125, end: 20100130
  2. VALSARTAN AND HYDROCHLOROTHIAZIDE [Concomitant]
     Route: 048
  3. EZETROL [Concomitant]
     Dosage: 1UNIT PER DAY
     Route: 048
  4. KARDEGIC [Concomitant]
     Dosage: 160MG PER DAY
     Route: 048
     Dates: start: 20070101

REACTIONS (4)
  - HEADACHE [None]
  - MALAISE [None]
  - PHONOPHOBIA [None]
  - VOMITING [None]
